FAERS Safety Report 5845013-8 (Version None)
Quarter: 2008Q3

REPORT INFORMATION
  Report Type: 
  Country: None (occurrence: None)
  Receive Date: 20080814
  Receipt Date: 20080812
  Transmission Date: 20090109
  Serious: Yes (Other)
  Sender: FDA-Public Use
  Company Number: US-BRISTOL-MYERS SQUIBB COMPANY-14287742

PATIENT
  Age: 71 Year
  Sex: Female

DRUGS (1)
  1. TRIAMCINOLONE ACETONIDE [Suspect]
     Dosage: INJECTION OF 0.1 ML OF INTRAVITREAL TRIAMCINOLONE ACETONIDE.
     Route: 031

REACTIONS (3)
  - CONJUNCTIVAL BLEB [None]
  - INTRAOCULAR PRESSURE DECREASED [None]
  - VISUAL ACUITY REDUCED [None]
